FAERS Safety Report 16870080 (Version 16)
Quarter: 2024Q3

REPORT INFORMATION
  Report Type: Report from Study
  Country: US (occurrence: US)
  Receive Date: 20190930
  Receipt Date: 20240917
  Transmission Date: 20241016
  Serious: No
  Sender: INCYTE
  Company Number: US-INCYTE CORPORATION-2019IN008797

PATIENT

DRUGS (28)
  1. JAKAFI [Suspect]
     Active Substance: RUXOLITINIB
     Indication: Myelofibrosis
     Dosage: 15 MILLIGRAM, BID
     Route: 048
     Dates: start: 20190825
  2. JAKAFI [Suspect]
     Active Substance: RUXOLITINIB
     Dosage: 15 MILLIGRAM, BID
     Route: 065
  3. JAKAFI [Suspect]
     Active Substance: RUXOLITINIB
     Dosage: 15 MILLIGRAM, QD
     Route: 048
  4. JAKAFI [Suspect]
     Active Substance: RUXOLITINIB
     Dosage: 15 MILLIGRAM, BID
     Route: 048
  5. JAKAFI [Suspect]
     Active Substance: RUXOLITINIB
     Dosage: 15 MILLIGRAM, BID
     Route: 048
     Dates: end: 20191122
  6. JAKAFI [Suspect]
     Active Substance: RUXOLITINIB
     Dosage: 10 MILLIGRAM, BID
     Route: 048
     Dates: start: 20191126
  7. JAKAFI [Suspect]
     Active Substance: RUXOLITINIB
     Dosage: 10 MILLIGRAM, BID
     Route: 048
     Dates: start: 20190825
  8. JAKAFI [Suspect]
     Active Substance: RUXOLITINIB
     Dosage: 10 MILLIGRAM
     Route: 048
  9. JAKAFI [Suspect]
     Active Substance: RUXOLITINIB
     Dosage: 10 MILLIGRAM, BID
     Route: 048
     Dates: start: 20190825
  10. JAKAFI [Suspect]
     Active Substance: RUXOLITINIB
     Dosage: 10 MILLIGRAM, BID
     Route: 048
     Dates: start: 20190825
  11. JAKAFI [Suspect]
     Active Substance: RUXOLITINIB
     Dosage: 10 MILLIGRAM, BID
     Route: 048
  12. JAKAFI [Suspect]
     Active Substance: RUXOLITINIB
     Dosage: 10 MILLIGRAM, BID
     Route: 048
  13. JAKAFI [Suspect]
     Active Substance: RUXOLITINIB
     Dosage: 10 MILLIGRAM, BID
     Route: 048
     Dates: start: 20190825
  14. CYMBALTA [Suspect]
     Active Substance: DULOXETINE HYDROCHLORIDE
     Indication: Product used for unknown indication
     Dosage: 30 MILLIGRAM, BID
     Route: 065
  15. ALBUTEROL [Concomitant]
     Active Substance: ALBUTEROL
     Indication: Product used for unknown indication
     Dosage: UNK
     Route: 065
  16. DRISDOL [Concomitant]
     Active Substance: ERGOCALCIFEROL
     Indication: Product used for unknown indication
     Dosage: UNK
     Route: 065
  17. NEXIUM [Concomitant]
     Active Substance: ESOMEPRAZOLE MAGNESIUM
     Indication: Product used for unknown indication
     Dosage: UNK
     Route: 065
  18. GABAPENTIN [Concomitant]
     Active Substance: GABAPENTIN
     Indication: Product used for unknown indication
     Dosage: UNK
     Route: 065
  19. CLARITIN [Concomitant]
     Active Substance: LORATADINE
     Indication: Product used for unknown indication
     Dosage: UNK, PRN
     Route: 065
  20. VITAMIN C [Concomitant]
     Active Substance: ASCORBIC ACID
     Indication: Product used for unknown indication
     Dosage: UNK
     Route: 065
  21. PRENATAL VITAMINS                  /07499601/ [Concomitant]
     Indication: Product used for unknown indication
     Dosage: UNK
     Route: 065
  22. CEPHALEXIN [Concomitant]
     Active Substance: CEPHALEXIN
     Indication: Product used for unknown indication
     Dosage: UNK
     Route: 065
  23. ATARAX [Concomitant]
     Active Substance: HYDROXYZINE HYDROCHLORIDE
     Indication: Product used for unknown indication
     Dosage: UNK
     Route: 065
  24. CALCIUM\VITAMIN D [Concomitant]
     Active Substance: CALCIUM\VITAMIN D
     Indication: Product used for unknown indication
     Dosage: UNK
     Route: 065
  25. TRAMADOL [Concomitant]
     Active Substance: TRAMADOL\TRAMADOL HYDROCHLORIDE
     Indication: Product used for unknown indication
     Dosage: UNK
     Route: 065
  26. OSCAL [CALCIUM CARBONATE] [Concomitant]
     Indication: Product used for unknown indication
     Dosage: UNK
     Route: 065
  27. DICLOFENAC [Concomitant]
     Active Substance: DICLOFENAC
     Indication: Product used for unknown indication
     Dosage: UNK
     Route: 065
  28. DULOXETINE [Concomitant]
     Active Substance: DULOXETINE
     Indication: Product used for unknown indication
     Dosage: UNK
     Route: 065

REACTIONS (64)
  - Pain [Not Recovered/Not Resolved]
  - Pain in extremity [Not Recovered/Not Resolved]
  - White blood cell count abnormal [Recovering/Resolving]
  - Toothache [Unknown]
  - Tooth fracture [Not Recovered/Not Resolved]
  - Somnolence [Not Recovered/Not Resolved]
  - Fibromyalgia [Not Recovered/Not Resolved]
  - Hypoaesthesia [Not Recovered/Not Resolved]
  - Back pain [Not Recovered/Not Resolved]
  - Arthritis [Not Recovered/Not Resolved]
  - Dry mouth [Not Recovered/Not Resolved]
  - Poor quality sleep [Not Recovered/Not Resolved]
  - Abdominal distension [Not Recovered/Not Resolved]
  - Abdominal pain lower [Not Recovered/Not Resolved]
  - Blood disorder [Unknown]
  - Feeling cold [Not Recovered/Not Resolved]
  - Depressed mood [Not Recovered/Not Resolved]
  - Vomiting [Not Recovered/Not Resolved]
  - Illness [Unknown]
  - Vitreous floaters [Not Recovered/Not Resolved]
  - Acne [Unknown]
  - Insomnia [Not Recovered/Not Resolved]
  - Vitamin D decreased [Not Recovered/Not Resolved]
  - Vitamin K decreased [Unknown]
  - Influenza [Recovering/Resolving]
  - Fall [Recovering/Resolving]
  - Rash erythematous [Not Recovered/Not Resolved]
  - Head discomfort [Unknown]
  - Haemoglobin increased [Unknown]
  - Arthralgia [Not Recovered/Not Resolved]
  - Asthma [Not Recovered/Not Resolved]
  - Chest discomfort [Unknown]
  - Gastrooesophageal reflux disease [Unknown]
  - Bone pain [Not Recovered/Not Resolved]
  - Depression [Not Recovered/Not Resolved]
  - Lipoma [Not Recovered/Not Resolved]
  - Low density lipoprotein increased [Not Recovered/Not Resolved]
  - High density lipoprotein increased [Not Recovered/Not Resolved]
  - Splenomegaly [Unknown]
  - Decreased activity [Unknown]
  - Red blood cells urine [Not Recovered/Not Resolved]
  - Therapy interrupted [Unknown]
  - Abdominal pain upper [Not Recovered/Not Resolved]
  - Arthralgia [Not Recovered/Not Resolved]
  - Pruritus [Not Recovered/Not Resolved]
  - Fatigue [Not Recovered/Not Resolved]
  - Nasopharyngitis [Not Recovered/Not Resolved]
  - Asthenia [Unknown]
  - Epistaxis [Not Recovered/Not Resolved]
  - Product dispensing issue [Unknown]
  - Product dose omission issue [Unknown]
  - Product availability issue [Unknown]
  - Physical product label issue [Unknown]
  - Headache [Not Recovered/Not Resolved]
  - Nausea [Not Recovered/Not Resolved]
  - Dizziness [Not Recovered/Not Resolved]
  - Muscle spasms [Not Recovered/Not Resolved]
  - Anaemia [Not Recovered/Not Resolved]
  - Platelet count decreased [Not Recovered/Not Resolved]
  - Contusion [Not Recovered/Not Resolved]
  - Weight increased [Not Recovered/Not Resolved]
  - Haemoglobin decreased [Not Recovered/Not Resolved]
  - Increased tendency to bruise [Not Recovered/Not Resolved]
  - Hypertension [Not Recovered/Not Resolved]

NARRATIVE: CASE EVENT DATE: 20191101
